FAERS Safety Report 24885282 (Version 1)
Quarter: 2025Q1

REPORT INFORMATION
  Report Type: Spontaneous
  Country: PL (occurrence: PL)
  Receive Date: 20250124
  Receipt Date: 20250124
  Transmission Date: 20250409
  Serious: Yes (Other)
  Sender: TEVA
  Company Number: None

PATIENT
  Age: 65 Year
  Sex: Female
  Weight: 71 kg

DRUGS (2)
  1. PACLITAXEL [Suspect]
     Active Substance: PACLITAXEL
     Indication: Product used for unknown indication
     Route: 042
     Dates: start: 20241107, end: 20241107
  2. CARBOPLATIN [Suspect]
     Active Substance: CARBOPLATIN
     Indication: Product used for unknown indication
     Route: 042
     Dates: start: 20241107, end: 20241107

REACTIONS (2)
  - Thrombocytopenia [Unknown]
  - Neutropenia [Unknown]

NARRATIVE: CASE EVENT DATE: 20241128
